FAERS Safety Report 6419554-9 (Version None)
Quarter: 2009Q4

REPORT INFORMATION
  Report Type: 
  Country: None (occurrence: None)
  Receive Date: 20091029
  Receipt Date: 20091009
  Transmission Date: 20100525
  Serious: Yes (Other)
  Sender: FDA-Public Use
  Company Number: FR-ELI_LILLY_AND_COMPANY-FR200909001313

PATIENT
  Age: 85 Year
  Sex: Male

DRUGS (5)
  1. CYMBALTA [Suspect]
     Indication: DIABETIC NEUROPATHY
     Dosage: 60 MG, DAILY (1/D)
     Route: 048
     Dates: end: 20090101
  2. UMULINE [Concomitant]
     Dosage: UNK, UNKNOWN
     Route: 058
  3. PREVISCAN [Concomitant]
     Route: 048
  4. ACEBUTOLOL [Concomitant]
     Route: 048
  5. FUROSEMIDE [Concomitant]
     Dosage: 40 MG, UNKNOWN
     Route: 048

REACTIONS (1)
  - AGGRESSION [None]
